FAERS Safety Report 10399302 (Version 1)
Quarter: 2014Q3

REPORT INFORMATION
  Report Type: Report from Study
  Country: BR (occurrence: BR)
  Receive Date: 20140821
  Receipt Date: 20140821
  Transmission Date: 20150326
  Serious: Yes (Other)
  Sender: FDA-Public Use
  Company Number: BR-ABBVIE-14P-020-1273088-00

PATIENT
  Age: 54 Year
  Sex: Female
  Weight: 58 kg

DRUGS (2)
  1. HUMIRA [Suspect]
     Active Substance: ADALIMUMAB
     Indication: RHEUMATOID ARTHRITIS
     Route: 058
     Dates: start: 201201, end: 20120708
  2. CILOSTAZOL. [Concomitant]
     Active Substance: CILOSTAZOL
     Indication: AMPUTATION
     Route: 048
     Dates: start: 20120705, end: 201405

REACTIONS (4)
  - Localised infection [Recovered/Resolved]
  - Blood glucose increased [Unknown]
  - Diabetic complication [Unknown]
  - Necrosis [Recovered/Resolved]

NARRATIVE: CASE EVENT DATE: 20120615
